FAERS Safety Report 16667624 (Version 2)
Quarter: 2019Q3

REPORT INFORMATION
  Report Type: Spontaneous
  Country: US (occurrence: US)
  Receive Date: 20190805
  Receipt Date: 20190919
  Transmission Date: 20191004
  Serious: Yes (Other)
  Sender: FDA-Public Use
  Company Number: US-PFIZER INC-2019331422

PATIENT
  Age: 41 Year
  Sex: Female
  Weight: 61.22 kg

DRUGS (3)
  1. EXEMESTANE. [Concomitant]
     Active Substance: EXEMESTANE
     Dosage: UNK
  2. IBRANCE [Suspect]
     Active Substance: PALBOCICLIB
     Indication: OVARIAN CANCER
     Dosage: 125 MG, DAILY (DAILY X3 WEEKS)
     Route: 048
     Dates: start: 20190719
  3. IBRANCE [Suspect]
     Active Substance: PALBOCICLIB
     Dosage: 125 MG, CYCLIC (DAILY FOR DAYS 1-21 OF 28 DAYS)
     Route: 048

REACTIONS (7)
  - Neoplasm progression [Unknown]
  - Stomatitis [Unknown]
  - Off label use [Unknown]
  - Skin papilloma [Unknown]
  - Product use in unapproved indication [Unknown]
  - Pain in extremity [Unknown]
  - Blister [Unknown]

NARRATIVE: CASE EVENT DATE: 20190730
